FAERS Safety Report 4816134-3 (Version None)
Quarter: 2005Q4

REPORT INFORMATION
  Report Type: 
  Country: None (occurrence: None)
  Receive Date: 20051026
  Receipt Date: 20051011
  Transmission Date: 20060501
  Serious: Yes (Death, Hospitalization)
  Sender: FDA-Public Use
  Company Number: CLOF-10117

PATIENT
  Age: 65 Year
  Sex: Female

DRUGS (1)
  1. CLOFARABINE [Suspect]
     Indication: ACUTE MYELOID LEUKAEMIA
     Dosage: 60 MG QD IV
     Route: 042
     Dates: start: 20050712, end: 20050716

REACTIONS (8)
  - ENTEROCOCCAL INFECTION [None]
  - GENERAL PHYSICAL HEALTH DETERIORATION [None]
  - LUNG CONSOLIDATION [None]
  - LYMPHADENOPATHY MEDIASTINAL [None]
  - NEUTROPENIC SEPSIS [None]
  - PLEURAL FIBROSIS [None]
  - RENAL FAILURE [None]
  - THERAPY NON-RESPONDER [None]
